FAERS Safety Report 18798218 (Version 2)
Quarter: 2021Q1

REPORT INFORMATION
  Report Type: Spontaneous
  Country: US (occurrence: US)
  Receive Date: 20210128
  Receipt Date: 20210217
  Transmission Date: 20210419
  Serious: No
  Sender: FDA-Public Use
  Company Number: US-SA-2021SA025218

PATIENT
  Age: 61 Year
  Sex: Female

DRUGS (1)
  1. DUPIXENT [Suspect]
     Active Substance: DUPILUMAB
     Indication: DERMATITIS ATOPIC
     Dosage: 300 MG, QOW
     Route: 065
     Dates: start: 20201203

REACTIONS (8)
  - Eye pain [Unknown]
  - Hypersensitivity [Unknown]
  - Asthenia [Unknown]
  - Rash [Unknown]
  - Arthralgia [Unknown]
  - Ocular discomfort [Unknown]
  - Lacrimation increased [Unknown]
  - Dyspepsia [Unknown]
